FAERS Safety Report 9160667 (Version 1)
Quarter: 2013Q1

REPORT INFORMATION
  Report Type: Spontaneous
  Country: US (occurrence: None)
  Receive Date: 20130215
  Receipt Date: 20130215
  Transmission Date: 20140127
  Serious: Yes (Other)
  Sender: FDA-Public Use
  Company Number: 2013AP002095

PATIENT
  Age: 17 Year
  Sex: Male

DRUGS (3)
  1. LEVETIRACETAM TABLETS [Suspect]
     Indication: CONVULSION
  2. PHENYTOIN [Concomitant]
  3. CHLORPROMAZINE [Concomitant]

REACTIONS (4)
  - Pancreatitis acute [None]
  - Irritability [None]
  - Mutism [None]
  - Convulsion [None]
